FAERS Safety Report 22002735 (Version 1)
Quarter: 2023Q1

REPORT INFORMATION
  Report Type: Other
  Country: US (occurrence: None)
  Receive Date: 20230217
  Receipt Date: 20230217
  Transmission Date: 20230417
  Serious: Yes (Death)
  Sender: FDA-Public Use
  Company Number: US-ROCHE-3273910

PATIENT
  Age: 79 Year
  Sex: Male

DRUGS (9)
  1. ESBRIET [Suspect]
     Active Substance: PIRFENIDONE
     Indication: Pulmonary fibrosis
     Route: 065
  2. CELEXA [Concomitant]
     Active Substance: CITALOPRAM HYDROBROMIDE
  3. METFORMIN [Concomitant]
     Active Substance: METFORMIN HYDROCHLORIDE
  4. SYNTHROID [Concomitant]
     Active Substance: LEVOTHYROXINE SODIUM
  5. LASIX [Concomitant]
     Active Substance: FUROSEMIDE
  6. KLOR-CON [Concomitant]
     Active Substance: POTASSIUM CHLORIDE
  7. LIPITOR [Concomitant]
     Active Substance: ATORVASTATIN CALCIUM
  8. METOPROLOL TARTRATE [Concomitant]
     Active Substance: METOPROLOL TARTRATE
  9. VENTOLIN [Concomitant]
     Active Substance: ALBUTEROL SULFATE

REACTIONS (1)
  - Death [Fatal]

NARRATIVE: CASE EVENT DATE: 20220812
